FAERS Safety Report 9731552 (Version 1)
Quarter: 2013Q4

REPORT INFORMATION
  Report Type: Spontaneous
  Country: US (occurrence: None)
  Receive Date: 20131204
  Receipt Date: 20131204
  Transmission Date: 20140711
  Serious: Yes (Life-Threatening, Hospitalization, Disabling, Other)
  Sender: FDA-Public Use
  Company Number: None

PATIENT
  Age: 70 Year
  Sex: Male
  Weight: 72.58 kg

DRUGS (1)
  1. RIVAROXABAN [Suspect]
     Indication: COAGULOPATHY
     Route: 048
     Dates: start: 20130307, end: 20130708

REACTIONS (1)
  - Gastrointestinal haemorrhage [None]
